FAERS Safety Report 4642053-1 (Version None)
Quarter: 2005Q2

REPORT INFORMATION
  Report Type: 
  Country: None (occurrence: None)
  Receive Date: 20050421
  Receipt Date: 20050331
  Transmission Date: 20051028
  Serious: Yes (Hospitalization)
  Sender: FDA-Public Use
  Company Number: FR_050105596

PATIENT
  Age: 52 Year
  Sex: Female
  Weight: 55 kg

DRUGS (5)
  1. GEMZAR [Suspect]
     Indication: BREAST CANCER METASTATIC
     Dosage: 1000 MG/M2/2 OTHER
     Route: 042
     Dates: start: 20041230, end: 20050107
  2. TAXOL [Concomitant]
  3. KYTRIL [Concomitant]
  4. SOLU-MEDROL [Concomitant]
  5. RANITIDINE HYDROCHLORIDE [Concomitant]

REACTIONS (8)
  - ABDOMINAL PAIN [None]
  - ANAEMIA [None]
  - EYELID OEDEMA [None]
  - FACE OEDEMA [None]
  - OEDEMA PERIPHERAL [None]
  - RASH PRURITIC [None]
  - RASH SCARLATINIFORM [None]
  - THROMBOCYTOPENIA [None]
